FAERS Safety Report 16241385 (Version 2)
Quarter: 2019Q2

REPORT INFORMATION
  Report Type: Report from Study
  Country: None (occurrence: US)
  Receive Date: 20190426
  Receipt Date: 20190507
  Transmission Date: 20190711
  Serious: Yes (Hospitalization)
  Sender: FDA-Public Use
  Company Number: US-ABBVIE-19K-163-2711010-00

PATIENT
  Age: 82 Year
  Sex: Female
  Weight: 58.11 kg

DRUGS (5)
  1. METHOTREXATE. [Concomitant]
     Active Substance: METHOTREXATE
     Indication: RHEUMATOID ARTHRITIS
  2. LOVASTATIN. [Concomitant]
     Active Substance: LOVASTATIN
     Indication: BLOOD CHOLESTEROL
  3. HUMIRA [Suspect]
     Active Substance: ADALIMUMAB
     Indication: RHEUMATOID ARTHRITIS
     Route: 058
  4. HYDROCHLORIZIDE [Concomitant]
     Indication: BLOOD PRESSURE MEASUREMENT
  5. FOLIC ACID. [Concomitant]
     Active Substance: FOLIC ACID
     Indication: PRODUCT USED FOR UNKNOWN INDICATION

REACTIONS (7)
  - Speech disorder [Unknown]
  - Muscular weakness [Unknown]
  - Influenza [Unknown]
  - Hypophagia [Unknown]
  - Rib fracture [Unknown]
  - Pneumothorax traumatic [Unknown]
  - Fall [Unknown]

NARRATIVE: CASE EVENT DATE: 201902
